FAERS Safety Report 17010349 (Version 1)
Quarter: 2019Q4

REPORT INFORMATION
  Report Type: Spontaneous
  Country: US (occurrence: US)
  Receive Date: 20191107
  Receipt Date: 20191107
  Transmission Date: 20200122
  Serious: Yes (Life-Threatening)
  Sender: FDA-Public Use
  Company Number: None

PATIENT
  Age: 60 Year
  Sex: Male

DRUGS (2)
  1. TBO-FILGRASTIM [Suspect]
     Active Substance: TBO-FILGRASTIM
     Dosage: ?          OTHER FREQUENCY:DAILY X 2 DOSES;?
     Route: 058
     Dates: start: 20181204, end: 20181205
  2. PLERIXAFOR [Suspect]
     Active Substance: PLERIXAFOR
     Dosage: ?          OTHER FREQUENCY:DAILY X 2 DOSES;?
     Route: 058
     Dates: start: 20181203, end: 20181204

REACTIONS (2)
  - Peritoneal haemorrhage [None]
  - Splenic rupture [None]

NARRATIVE: CASE EVENT DATE: 20181206
